FAERS Safety Report 5778513-X (Version None)
Quarter: 2008Q2

REPORT INFORMATION
  Report Type: 
  Country: None (occurrence: None)
  Receive Date: 20080619
  Receipt Date: 20080613
  Transmission Date: 20081010
  Serious: Yes (Other)
  Sender: FDA-Public Use
  Company Number: US-ASTRAZENECA-2008UW12046

PATIENT
  Sex: Female

DRUGS (1)
  1. MERREM [Suspect]
     Indication: ANTIBIOTIC THERAPY
     Route: 042

REACTIONS (1)
  - LIMB INJURY [None]
